FAERS Safety Report 9616151 (Version 1)
Quarter: 2013Q4

REPORT INFORMATION
  Report Type: Spontaneous
  Country: US (occurrence: US)
  Receive Date: 20131011
  Receipt Date: 20131011
  Transmission Date: 20140711
  Serious: No
  Sender: FDA-Public Use
  Company Number: US-US-EMD SERONO, INC.-7242043

PATIENT
  Age: 26 Year
  Sex: Female
  Weight: 77 kg

DRUGS (7)
  1. REBIF [Suspect]
     Indication: PRODUCT USED FOR UNKNOWN INDICATION
     Route: 058
  2. FLUOXETINE                         /00724402/ [Concomitant]
     Indication: PRODUCT USED FOR UNKNOWN INDICATION
  3. VERAPAMIL                          /00014302/ [Concomitant]
     Indication: PRODUCT USED FOR UNKNOWN INDICATION
  4. IMITREX                            /01044802/ [Concomitant]
     Indication: PRODUCT USED FOR UNKNOWN INDICATION
  5. PROVIGIL [Concomitant]
     Indication: PRODUCT USED FOR UNKNOWN INDICATION
  6. VITAMIN D                          /00107901/ [Concomitant]
     Indication: PRODUCT USED FOR UNKNOWN INDICATION
  7. COMPAZINE                          /00013302/ [Concomitant]
     Indication: PRODUCT USED FOR UNKNOWN INDICATION

REACTIONS (2)
  - Nausea [Unknown]
  - Influenza like illness [Unknown]
